FAERS Safety Report 23543065 (Version 1)
Quarter: 2024Q1

REPORT INFORMATION
  Report Type: Spontaneous
  Country: FR (occurrence: FR)
  Receive Date: 20240220
  Receipt Date: 20240220
  Transmission Date: 20240410
  Serious: Yes (Other)
  Sender: FDA-Public Use
  Company Number: FR-ABBVIE-5520540

PATIENT
  Age: 88 Year
  Sex: Female

DRUGS (5)
  1. METHYLPREDNISOLONE [Suspect]
     Active Substance: METHYLPREDNISOLONE
     Indication: Uveitis
     Dosage: UNK
     Route: 042
  2. METHYLPREDNISOLONE [Suspect]
     Active Substance: METHYLPREDNISOLONE
     Indication: Ocular vasculitis
  3. PREDNISOLONE ACETATE [Suspect]
     Active Substance: PREDNISOLONE ACETATE
     Indication: Anterior chamber inflammation
     Dosage: UNK
     Route: 047
  4. ATROPINE [Concomitant]
     Active Substance: ATROPINE\ATROPINE SULFATE
     Indication: Mydriasis
     Dosage: UNK
     Route: 065
  5. TIMOLOL [Concomitant]
     Active Substance: TIMOLOL
     Indication: Intraocular pressure test abnormal
     Dosage: UNK
     Route: 065

REACTIONS (1)
  - Suicidal ideation [Unknown]
